FAERS Safety Report 7538041-8 (Version None)
Quarter: 2011Q2

REPORT INFORMATION
  Report Type: 
  Country: None (occurrence: None)
  Receive Date: 20110609
  Receipt Date: 20110603
  Transmission Date: 20111010
  Serious: Yes (Other)
  Sender: FDA-Public Use
  Company Number: JP-CEPHALON-2011001622

PATIENT
  Age: 71 Year
  Sex: Male

DRUGS (11)
  1. BENDAMUSTINE HCL [Suspect]
     Indication: MANTLE CELL LYMPHOMA
     Route: 042
     Dates: start: 20101215, end: 20101216
  2. GRANISETRON HCL [Concomitant]
  3. OXYCODONE HCL [Concomitant]
     Dates: start: 20101221, end: 20101221
  4. BENDAMUSTINE HCL [Suspect]
     Route: 042
     Dates: start: 20110112, end: 20110113
  5. HEPARIN SODIUM [Concomitant]
     Dates: start: 20110131, end: 20110209
  6. METOCLOPRAMIDE [Concomitant]
     Dates: start: 20101221, end: 20101221
  7. FILGRASTIM [Concomitant]
     Dates: start: 20101220, end: 20110130
  8. SULFAMETHOXAZOLE AND TRIMETHOPRIM [Concomitant]
  9. VALACYCLOVIR HCL [Concomitant]
  10. SENNOSIDE [Concomitant]
     Dates: start: 20101218, end: 20101220
  11. DEXAMETHASONE SODIUM PHOSPHATE [Concomitant]
     Dates: start: 20101216, end: 20101216

REACTIONS (4)
  - PANCYTOPENIA [None]
  - FEBRILE NEUTROPENIA [None]
  - NAUSEA [None]
  - VOMITING [None]
